FAERS Safety Report 5400004-6 (Version None)
Quarter: 2007Q3

REPORT INFORMATION
  Report Type: 
  Country: None (occurrence: None)
  Receive Date: 20070730
  Receipt Date: 20070725
  Transmission Date: 20080115
  Serious: Yes (Disabling)
  Sender: FDA-Public Use
  Company Number: US-AMGEN-US071505

PATIENT
  Sex: Male

DRUGS (5)
  1. ENBREL [Suspect]
     Indication: RHEUMATOID ARTHRITIS
     Route: 058
     Dates: start: 20021203
  2. METHOTREXATE [Suspect]
     Route: 048
     Dates: start: 20020213
  3. PREDNISONE [Suspect]
     Route: 048
     Dates: start: 20011226
  4. FOLIC ACID [Concomitant]
     Route: 048
     Dates: start: 20020213
  5. ULTRACET [Concomitant]
     Route: 048
     Dates: start: 20030129

REACTIONS (1)
  - OSTEONECROSIS [None]
